FAERS Safety Report 10062570 (Version 1)
Quarter: 2014Q1

REPORT INFORMATION
  Report Type: Spontaneous
  Country: US (occurrence: None)
  Receive Date: 20140313
  Receipt Date: 20140313
  Transmission Date: 20141002
  Serious: Yes (Other)
  Sender: FDA-Public Use
  Company Number: 1000052519

PATIENT
  Age: 51 Year
  Sex: Female

DRUGS (3)
  1. DALIRESP (ROFLUMILAST) (500 MICROGRAM, TABLETS) [Suspect]
     Indication: CHRONIC OBSTRUCTIVE PULMONARY DISEASE
     Dates: start: 20131216
  2. OXYGEN (OXYGEN) (OXYGEN) [Concomitant]
  3. SYMBICORT (BUDESONIDE W/FORMOTEROL FUMARATE) (BUDESONIDE W/FUMOTEROL FUMARATE) [Concomitant]

REACTIONS (2)
  - Back pain [None]
  - Chest discomfort [None]
